FAERS Safety Report 5366382-1 (Version None)
Quarter: 2007Q2

REPORT INFORMATION
  Report Type: 
  Country: None (occurrence: None)
  Receive Date: 20070622
  Receipt Date: 20070614
  Transmission Date: 20071010
  Serious: Yes (Death)
  Sender: FDA-Public Use
  Company Number: BE-BAXTER-2007BH005416

PATIENT
  Sex: Female

DRUGS (8)
  1. EXTRANEAL [Suspect]
     Indication: PERITONEAL DIALYSIS
     Dosage: DOSE UNIT:UNKNOWN
     Route: 033
     Dates: end: 20011101
  2. DIANEAL [Suspect]
     Indication: PERITONEAL DIALYSIS
     Dosage: DOSE UNIT:UNKNOWN
     Route: 033
  3. CELLCEPT [Concomitant]
  4. PROGRAF [Concomitant]
  5. MEDROL [Concomitant]
  6. ACETYLSALICYLIC ACID SRT [Concomitant]
  7. FUROSEMIDE [Concomitant]
  8. GLUCOSE [Concomitant]

REACTIONS (4)
  - PERITONITIS [None]
  - SCLEROSING ENCAPSULATING PERITONITIS [None]
  - SEPSIS [None]
  - SMALL INTESTINAL PERFORATION [None]
